FAERS Safety Report 8110639 (Version 4)
Quarter: 2013Q1

REPORT INFORMATION
  Report Type: Spontaneous
  Country: BR (occurrence: BR)
  Receive Date: 20110829
  Receipt Date: 20130212
  Transmission Date: 20140127
  Serious: Yes (Hospitalization, Other)
  Sender: FDA-Public Use
  Company Number: PHHY2011BR12866

PATIENT
  Sex: Male
  Weight: 80 kg

DRUGS (22)
  1. LEPONEX [Suspect]
     Indication: SCHIZOPHRENIA
     Dosage: 3 CAPSULES AT ONCE IN THE MORNING AND 5 CAPSULES AT NIGHT AT NIGHT
     Route: 048
  2. LEPONEX [Suspect]
     Indication: CONVULSION
     Dosage: 100 MG, UNK
  3. LEPONEX [Suspect]
     Dosage: 3 DF, DAILY (1 TABLET 3 TIMES A DAY)
     Route: 048
  4. LEPONEX [Suspect]
     Dosage: 100 MG, AT A DOSE OF 8 TABLET DAILY
     Route: 048
  5. GARDENAL ^AVENTIS^ [Concomitant]
  6. ABILIFY [Concomitant]
  7. HALDOL [Concomitant]
     Indication: SCHIZOPHRENIA
     Dosage: 5 MG, 1 TABLET TWICE A DAY
     Route: 048
  8. CHLORPROMAZINE [Concomitant]
     Indication: SCHIZOPHRENIA
     Dosage: 100 MG, 1 TABLET 3 TIMES A DAY
  9. AKINETON                                /AUS/ [Concomitant]
     Indication: SCHIZOPHRENIA
     Dosage: 1 TABLET TWICE A DAY
     Route: 048
  10. FENERGAN [Concomitant]
     Indication: SCHIZOPHRENIA
     Dosage: 25 MG, 1 TABLET 3 TIMES A DAY
  11. PHENOBARBITAL [Concomitant]
     Indication: SCHIZOPHRENIA
     Dosage: 100 MG, 1 TABLET A DAY
     Route: 048
  12. AMPLICTIL [Concomitant]
  13. CLONAZEPAM [Concomitant]
  14. ARIPIPRAZOLE [Concomitant]
  15. ZIPRASIDONE [Concomitant]
     Dosage: 40 MG, UNK
  16. ZIPRASIDONE [Concomitant]
     Dosage: 80 MG, UNK
  17. OLANZAPINE [Concomitant]
     Dosage: 25 MG, UNK
  18. RISPERIDONE [Concomitant]
     Dosage: 1 MG, UNK
  19. RISPERIDONE [Concomitant]
     Dosage: 2 MG, UNK
  20. QUETIAPINE [Concomitant]
     Dosage: 25 MG, UNK
  21. QUETIAPINE [Concomitant]
     Dosage: 100 MG, UNK
  22. BIPERIDEN [Concomitant]
     Dosage: 2 DF, DAILY

REACTIONS (18)
  - Delusion of grandeur [Recovered/Resolved]
  - Abnormal behaviour [Recovered/Resolved]
  - Decreased appetite [Recovered/Resolved]
  - Penile infection [Recovered/Resolved]
  - Pruritus [Recovered/Resolved]
  - Wound [Recovered/Resolved]
  - Aggression [Recovering/Resolving]
  - Depressed mood [Recovered/Resolved]
  - Respiratory arrest [Recovered/Resolved]
  - Salivary hypersecretion [Recovered/Resolved]
  - Drooling [Recovered/Resolved]
  - Convulsion [Recovered/Resolved]
  - Syncope [Recovered/Resolved]
  - Red blood cell count decreased [Recovered/Resolved]
  - Malaise [Recovering/Resolving]
  - Somnolence [Recovering/Resolving]
  - White blood cell count decreased [Recovered/Resolved]
  - Weight increased [Recovered/Resolved]
